FAERS Safety Report 4385347-X (Version None)
Quarter: 2004Q2

REPORT INFORMATION
  Report Type: 
  Country: None (occurrence: None)
  Receive Date: 20040628
  Receipt Date: 20040406
  Transmission Date: 20050107
  Serious: Yes (Death)
  Sender: FDA-Public Use
  Company Number: PHEH2004US04070

PATIENT
  Age: 42 Year
  Sex: Female
  Weight: 102 kg

DRUGS (5)
  1. DIOVAN [Suspect]
     Dosage: UNK, QD
  2. ALPRAZOLAM [Suspect]
  3. PAXIL [Suspect]
  4. SEROQUEL [Suspect]
  5. ETHANOL [Suspect]

REACTIONS (7)
  - COMPLETED SUICIDE [None]
  - DRUG LEVEL INCREASED [None]
  - DRUG TOXICITY [None]
  - OVERDOSE [None]
  - PULMONARY CONGESTION [None]
  - PULMONARY OEDEMA [None]
  - VENTRICULAR HYPERTROPHY [None]
